FAERS Safety Report 5060326-8 (Version None)
Quarter: 2006Q3

REPORT INFORMATION
  Report Type: 
  Country: None (occurrence: None)
  Receive Date: 20060718
  Receipt Date: 20060629
  Transmission Date: 20061208
  Serious: Yes (Hospitalization)
  Sender: FDA-Public Use
  Company Number: US200604000501

PATIENT
  Age: 46 Year
  Sex: Female

DRUGS (5)
  1. CYMBALTA [Suspect]
     Indication: PAIN
     Dosage: 30 MG, 2/D, UNK
     Dates: start: 20060331
  2. XANAX     /USA/(ALPRAZOLAM) [Concomitant]
  3. HYDROCHLOROTHIAZIDE [Concomitant]
  4. MONOPRIL (MONOPRIL (FOSINOPRIL SODIUM) [Concomitant]
  5. ACIPHEX [Concomitant]

REACTIONS (9)
  - DEPRESSION [None]
  - HYPERSOMNIA [None]
  - MALAISE [None]
  - MENORRHAGIA [None]
  - MENSTRUATION IRREGULAR [None]
  - NAUSEA [None]
  - OLIGOMENORRHOEA [None]
  - SUICIDAL IDEATION [None]
  - VIRAL LOAD INCREASED [None]
